FAERS Safety Report 8429872-0 (Version None)
Quarter: 2012Q2

REPORT INFORMATION
  Report Type: 
  Country: None (occurrence: None)
  Receive Date: 20120612
  Receipt Date: 20120531
  Transmission Date: 20120825
  Serious: Yes (Hospitalization)
  Sender: FDA-Public Use
  Company Number: FR-BRISTOL-MYERS SQUIBB COMPANY-16412470

PATIENT
  Age: 68 Year
  Sex: Male

DRUGS (3)
  1. PAROXETINE HCL [Suspect]
     Indication: MANIA
     Route: 048
     Dates: start: 20110601
  2. ABILIFY [Suspect]
     Indication: MANIA
     Dates: start: 20110601, end: 20111001
  3. OXAZEPAM [Suspect]
     Indication: MANIA
     Route: 048
     Dates: start: 20110601

REACTIONS (2)
  - PULMONARY EMBOLISM [None]
  - HAEMATURIA [None]
